FAERS Safety Report 4801503-8 (Version None)
Quarter: 2005Q4

REPORT INFORMATION
  Report Type: 
  Country: None (occurrence: None)
  Receive Date: 20051011
  Receipt Date: 20050926
  Transmission Date: 20060501
  Serious: Yes (Hospitalization, Other)
  Sender: FDA-Public Use
  Company Number: 2005133906

PATIENT
  Sex: Male
  Weight: 80.7403 kg

DRUGS (13)
  1. CELEBREX [Suspect]
     Indication: PAIN
     Dosage: 400 MG (200 MG, 2 IN 1 D)
  2. BEXTRA [Suspect]
     Indication: PAIN
     Dosage: 20 MG (20 MG, 1 IN 1 D)
  3. LIPITOR [Suspect]
     Indication: BLOOD CHOLESTEROL INCREASED
     Dosage: 80 MG (80 MG, 1 IN 1 D
  4. ALL OTHER THERAPEUTIC PRODUCTS (ALL OTHER THERAPEUTIC PRODUCTS) [Suspect]
     Indication: ILL-DEFINED DISORDER
  5. INSULIN GLARGINE (INSULIN GLARGINE) [Concomitant]
  6. OMEPRAZOLE [Concomitant]
  7. PLAVIX [Concomitant]
  8. TOPROL (METOPROLOL) [Concomitant]
  9. ACETYLSALICYLIC ACID SRT [Concomitant]
  10. CENTRUM SILVER (ASCORBIC ACID, CALCIUM, MINERALS NOS, RETINOL, TOCOPHE [Concomitant]
  11. ENALAPRIL MALEATE [Concomitant]
  12. TRAZODONE (TRAZODONE) [Concomitant]
  13. NORVASC [Concomitant]

REACTIONS (16)
  - ANAEMIA [None]
  - ARTHRALGIA [None]
  - BLOOD CHOLESTEROL INCREASED [None]
  - CARDIAC DISORDER [None]
  - CARDIAC STRESS TEST ABNORMAL [None]
  - CHEST PAIN [None]
  - CHOLELITHIASIS [None]
  - CONDITION AGGRAVATED [None]
  - CORONARY ARTERY OCCLUSION [None]
  - DIABETES MELLITUS [None]
  - HAEMORRHAGE [None]
  - HYPERTENSION [None]
  - INTERMITTENT CLAUDICATION [None]
  - MYALGIA [None]
  - MYOCARDIAL INFARCTION [None]
  - NAUSEA [None]
